FAERS Safety Report 8140531-4 (Version None)
Quarter: 2012Q1

REPORT INFORMATION
  Report Type: 
  Country: None (occurrence: None)
  Receive Date: 20120213
  Receipt Date: 20120213
  Transmission Date: 20120608
  Serious: No
  Sender: FDA-Public Use
  Company Number: None

PATIENT
  Sex: Female

DRUGS (1)
  1. OVRAL [Suspect]
     Indication: MENORRHAGIA

REACTIONS (4)
  - MENORRHAGIA [None]
  - BREAST TENDERNESS [None]
  - DYSMENORRHOEA [None]
  - MENSTRUATION IRREGULAR [None]
